FAERS Safety Report 9576461 (Version 1)
Quarter: 2013Q4

REPORT INFORMATION
  Report Type: Spontaneous
  Country: US (occurrence: US)
  Receive Date: 20131001
  Receipt Date: 20131001
  Transmission Date: 20140711
  Serious: No
  Sender: FDA-Public Use
  Company Number: US-AMGEN-USASP2013003050

PATIENT
  Sex: Male
  Weight: 83.9 kg

DRUGS (10)
  1. ENBREL [Suspect]
     Indication: PRODUCT USED FOR UNKNOWN INDICATION
     Dosage: 50 MG, ONCE A WEEKLY
     Route: 058
  2. CENTRUM SILVER                     /02363801/ [Concomitant]
     Dosage: UNK
  3. RAMIPRIL [Concomitant]
     Dosage: 5 MG, UNK
  4. METHOTREXATE [Concomitant]
     Dosage: 2.5 MG, UNK
  5. METOPROLOL [Concomitant]
     Dosage: 25 MG, UNK
  6. CRESTOR [Concomitant]
     Dosage: 40 MG, UNK
  7. ASPIRIN BUFFERED [Concomitant]
     Dosage: 325 MG, UNK
  8. FISH OIL [Concomitant]
     Dosage: UNK
  9. CALCIUM +D                         /07511201/ [Concomitant]
     Dosage: UNK
  10. FOLIC ACID [Concomitant]
     Dosage: 20 MG, UNK

REACTIONS (1)
  - Nasopharyngitis [Unknown]
